FAERS Safety Report 6362365-3 (Version None)
Quarter: 2009Q3

REPORT INFORMATION
  Report Type: 
  Country: None (occurrence: None)
  Receive Date: 20090918
  Receipt Date: 20090528
  Transmission Date: 20100115
  Serious: No
  Sender: FDA-Public Use
  Company Number: US-ABBOTT-09P-163-0579682-00

PATIENT
  Sex: Female
  Weight: 83.99 kg

DRUGS (11)
  1. HUMIRA [Suspect]
     Indication: RHEUMATOID ARTHRITIS
     Route: 058
     Dates: start: 20090101
  2. HUMIRA [Suspect]
     Dosage: PRE-FILLED SYRINGE
     Dates: start: 20050101, end: 20090101
  3. METHOTREXATE [Concomitant]
     Indication: RHEUMATOID ARTHRITIS
  4. PREDNISONE [Concomitant]
     Indication: RHEUMATOID ARTHRITIS
  5. PROZAC [Concomitant]
     Indication: DEPRESSION
  6. ACTONEL [Concomitant]
     Indication: OSTEOPOROSIS
  7. FLEXERIL [Concomitant]
     Indication: MUSCLE RELAXANT THERAPY
  8. LIPITOR [Concomitant]
     Indication: BLOOD CHOLESTEROL INCREASED
  9. MAXZIDE [Concomitant]
     Indication: FLUID RETENTION
  10. METFORMIN HCL [Concomitant]
     Indication: DIABETES MELLITUS
  11. BUSPIRONE HCL [Concomitant]
     Indication: DEPRESSION

REACTIONS (3)
  - ARTHRITIS [None]
  - BONE DISORDER [None]
  - WRONG TECHNIQUE IN DRUG USAGE PROCESS [None]
